FAERS Safety Report 6194830-6 (Version None)
Quarter: 2009Q2

REPORT INFORMATION
  Report Type: 
  Country: None (occurrence: None)
  Receive Date: 20090515
  Receipt Date: 20090515
  Transmission Date: 20091009
  Serious: Yes (Other)
  Sender: FDA-Public Use
  Company Number: None

PATIENT
  Age: 32 Year
  Sex: Female
  Weight: 54.4 kg

DRUGS (1)
  1. OTRIVIN [Suspect]
     Indication: HYPERSENSITIVITY
     Dosage: TID, NASAL
     Route: 045
     Dates: start: 19970901

REACTIONS (7)
  - DRUG DEPENDENCE [None]
  - DYSPNOEA [None]
  - INTENTIONAL DRUG MISUSE [None]
  - NASAL OEDEMA [None]
  - PANIC REACTION [None]
  - SCAB [None]
  - SINUS DISORDER [None]
